FAERS Safety Report 4707183-4 (Version None)
Quarter: 2005Q3

REPORT INFORMATION
  Report Type: 
  Country: None (occurrence: None)
  Receive Date: 20050701
  Receipt Date: 20050616
  Transmission Date: 20060218
  Serious: No
  Sender: FDA-Public Use
  Company Number: 11654

PATIENT
  Age: 68 Year
  Sex: Female

DRUGS (8)
  1. AMIODARONE HCL [Suspect]
     Indication: ATRIAL FIBRILLATION
     Dosage: IV
     Route: 042
     Dates: start: 20000101
  2. ASPIRIN [Concomitant]
  3. NITROGLYCERIN [Concomitant]
  4. FUROSEMIDE [Concomitant]
  5. CARBEDILOL [Concomitant]
  6. MIGLITOL [Concomitant]
  7. LOVASTATIN [Concomitant]
  8. CARDESARTAN [Concomitant]

REACTIONS (3)
  - BLOOD CREATININE INCREASED [None]
  - CYTOLYTIC HEPATITIS [None]
  - HEPATITIS TOXIC [None]
